FAERS Safety Report 14957537 (Version 2)
Quarter: 2018Q3

REPORT INFORMATION
  Report Type: Report from Study
  Country: US (occurrence: US)
  Receive Date: 20180531
  Receipt Date: 20180925
  Transmission Date: 20181010
  Serious: No
  Sender: FDA-Public Use
  Company Number: US-THERATECHNOLOGIES, INC.-TH-2018-00278

PATIENT

DRUGS (23)
  1. FENOFIBRATE. [Concomitant]
     Active Substance: FENOFIBRATE
     Dosage: UNK
  2. DULOXETINE. [Concomitant]
     Active Substance: DULOXETINE
     Dosage: UNK
  3. ATORVASTATIN [Concomitant]
     Active Substance: ATORVASTATIN
     Dosage: UNK
  4. MULTIVITAMIN                       /07504101/ [Concomitant]
     Active Substance: VITAMINS
     Dosage: UNK
  5. TRAMADOL. [Concomitant]
     Active Substance: TRAMADOL
     Dosage: UNK
  6. LOPERAMIDE [Concomitant]
     Active Substance: LOPERAMIDE
     Dosage: UNK
  7. ZOLPIDEM [Concomitant]
     Active Substance: ZOLPIDEM\ZOLPIDEM TARTRATE
     Dosage: UNK
  8. FISH OIL [Concomitant]
     Active Substance: FISH OIL
     Dosage: UNK
  9. CYCLOBENZAPRINE. [Concomitant]
     Active Substance: CYCLOBENZAPRINE
     Dosage: UNK
  10. LYRICA [Concomitant]
     Active Substance: PREGABALIN
     Dosage: UNK
  11. OTHER THERAPEUTIC PRODUCTS [Concomitant]
     Active Substance: UNSPECIFIED INGREDIENT
     Dosage: UNK
  12. PRAZOSIN HCL [Concomitant]
     Active Substance: PRAZOSIN HYDROCHLORIDE
     Dosage: UNK
  13. METFORMIN [Concomitant]
     Active Substance: METFORMIN HYDROCHLORIDE
     Dosage: UNK
  14. CELECOXIB. [Concomitant]
     Active Substance: CELECOXIB
     Dosage: UNK
  15. CABERGOLINE. [Concomitant]
     Active Substance: CABERGOLINE
  16. CREON [Concomitant]
     Active Substance: PANCRELIPASE AMYLASE\PANCRELIPASE LIPASE\PANCRELIPASE PROTEASE
  17. EGRIFTA [Suspect]
     Active Substance: TESAMORELIN
     Indication: HIV INFECTION
     Dosage: 2 MG MILLIGRAM(S), QD
     Route: 058
     Dates: start: 20180426
  18. GABAPENTIN. [Concomitant]
     Active Substance: GABAPENTIN
     Dosage: UNK
  19. BUSPIRON                           /00803202/ [Concomitant]
     Dosage: UNK
  20. PROVENTIL [Concomitant]
     Active Substance: ALBUTEROL
  21. EGRIFTA [Suspect]
     Active Substance: TESAMORELIN
     Indication: ACQUIRED IMMUNODEFICIENCY SYNDROME
  22. IBU [Concomitant]
     Active Substance: IBUPROFEN
     Dosage: UNK
  23. IRON [Concomitant]
     Active Substance: IRON
     Dosage: UNK

REACTIONS (6)
  - Drug dose omission [Not Recovered/Not Resolved]
  - Dyspnoea [Not Recovered/Not Resolved]
  - Drug dose omission [Not Recovered/Not Resolved]
  - Weight increased [Not Recovered/Not Resolved]
  - Arthralgia [Not Recovered/Not Resolved]
  - Dizziness [Not Recovered/Not Resolved]

NARRATIVE: CASE EVENT DATE: 201805
